FAERS Safety Report 9205810 (Version 1)
Quarter: 2013Q1

REPORT INFORMATION
  Report Type: Spontaneous
  Country: US (occurrence: None)
  Receive Date: 20120731
  Receipt Date: 20120731
  Transmission Date: 20140127
  Serious: Yes (Hospitalization, Other)
  Sender: FDA-Public Use
  Company Number: US201206000909

PATIENT
  Sex: Female
  Weight: 63.9 kg

DRUGS (1)
  1. BYDUREON [Suspect]
     Indication: TYPE 2 DIABETES MELLITUS
     Route: 058
     Dates: start: 20120217, end: 20120416

REACTIONS (5)
  - Pancreatitis [None]
  - Abdominal pain [None]
  - Vomiting [None]
  - Abdominal discomfort [None]
  - Nausea [None]
